FAERS Safety Report 7241321-7 (Version None)
Quarter: 2011Q1

REPORT INFORMATION
  Report Type: 
  Country: None (occurrence: None)
  Receive Date: 20110120
  Receipt Date: 20110120
  Transmission Date: 20110831
  Serious: Yes (Life-Threatening, Other)
  Sender: FDA-Public Use
  Company Number: None

PATIENT

DRUGS (1)
  1. ALENDRONATE SODIUM [Suspect]
     Indication: OESOPHAGEAL SPASM
     Dates: start: 20100801, end: 20100801

REACTIONS (3)
  - OESOPHAGEAL SPASM [None]
  - DRUG HYPERSENSITIVITY [None]
  - THROAT TIGHTNESS [None]
